FAERS Safety Report 4668821-8 (Version None)
Quarter: 2005Q2

REPORT INFORMATION
  Report Type: 
  Country: None (occurrence: None)
  Receive Date: 20050523
  Receipt Date: 20050301
  Transmission Date: 20051028
  Serious: Yes (Other)
  Sender: FDA-Public Use
  Company Number: PHNU2005DE01163

PATIENT
  Sex: Male
  Weight: 78 kg

DRUGS (4)
  1. ZOMETA [Suspect]
     Indication: METASTASES TO BONE
     Dosage: 4 MG, QMO
     Route: 042
     Dates: start: 20020101
  2. TAXOTERE [Concomitant]
     Indication: PROSTATE CANCER
  3. DEXAMETHASONE [Concomitant]
     Route: 065
  4. PREDNISOLONE [Concomitant]
     Indication: PROSTATE CANCER
     Route: 065
     Dates: start: 20040101

REACTIONS (2)
  - OSTEONECROSIS [None]
  - TOOTH EXTRACTION [None]
